FAERS Safety Report 4339053-8 (Version None)
Quarter: 2004Q1

REPORT INFORMATION
  Report Type: 
  Country: None (occurrence: None)
  Receive Date: 20040329
  Receipt Date: 20040203
  Transmission Date: 20041129
  Serious: No
  Sender: FDA-Public Use
  Company Number: USA040258358

PATIENT
  Age: 7 Year
  Sex: Male

DRUGS (1)
  1. STRATTERA [Suspect]
     Dosage: 10 MG/TWICE DAY
     Dates: end: 20040131

REACTIONS (2)
  - CONTUSION [None]
  - GINGIVAL BLEEDING [None]
